FAERS Safety Report 18512683 (Version 1)
Quarter: 2020Q4

REPORT INFORMATION
  Report Type: Spontaneous
  Country: CA (occurrence: CA)
  Receive Date: 20201117
  Receipt Date: 20201117
  Transmission Date: 20210114
  Serious: Yes (Other)
  Sender: FDA-Public Use
  Company Number: NVSC2020CA306295

PATIENT

DRUGS (3)
  1. ARACYTINE [Suspect]
     Active Substance: CYTARABINE
     Indication: MANTLE CELL LYMPHOMA
     Dosage: UNK
     Route: 065
  2. DEXAMETHASONE. [Suspect]
     Active Substance: DEXAMETHASONE
     Indication: MANTLE CELL LYMPHOMA
     Dosage: 40 MG, QD FOR 3 DAYS PER CYCLE
     Route: 065
  3. RITUXIMAB. [Suspect]
     Active Substance: RITUXIMAB
     Indication: MANTLE CELL LYMPHOMA
     Dosage: 375 MG/M2 FOR 3 DAYS PER CYCLE
     Route: 065

REACTIONS (4)
  - Malignant neoplasm progression [Unknown]
  - Therapy partial responder [Unknown]
  - Mantle cell lymphoma [Unknown]
  - Product use in unapproved indication [Unknown]
